FAERS Safety Report 20662307 (Version 1)
Quarter: 2022Q2

REPORT INFORMATION
  Report Type: Report from Study
  Country: BR (occurrence: BR)
  Receive Date: 20220401
  Receipt Date: 20220401
  Transmission Date: 20220721
  Serious: Yes (Other)
  Sender: FDA-Public Use
  Company Number: BR-JNJFOC-20220363560

PATIENT
  Sex: Female

DRUGS (5)
  1. SIMPONI [Suspect]
     Active Substance: GOLIMUMAB
     Indication: Rheumatoid arthritis
     Route: 058
     Dates: start: 20161003
  2. SIMPONI [Suspect]
     Active Substance: GOLIMUMAB
  3. LEVOTHYROXINE [Concomitant]
     Active Substance: LEVOTHYROXINE
  4. RIVOTRIL [Concomitant]
     Active Substance: CLONAZEPAM
  5. ATENOLOL [Concomitant]
     Active Substance: ATENOLOL

REACTIONS (1)
  - Skin cancer [Unknown]
